FAERS Safety Report 9199530 (Version 2)
Quarter: 2013Q2

REPORT INFORMATION
  Report Type: Spontaneous
  Country: US (occurrence: None)
  Receive Date: 20130326
  Receipt Date: 20130402
  Transmission Date: 20140414
  Serious: Yes (Hospitalization)
  Sender: FDA-Public Use
  Company Number: 2013-0445

PATIENT
  Age: 73 Year
  Sex: Male

DRUGS (8)
  1. KYPROLIS (CARFILZOMIB)(INJECTION FOR INFUSION)(CARFILZOMIB) [Suspect]
     Indication: PLASMA CELL MYELOMA
     Route: 042
     Dates: start: 20121112, end: 20130131
  2. FUROSEMIDE (FUROSEMIDE)(FUROSEMIDE) [Concomitant]
  3. KLORCON (POTASSIUM CHLORIDE)(POTASSIUM CHLORIDE) [Concomitant]
  4. RANITIDINE (RANITIDINE)(RANITIDINE) [Concomitant]
  5. ATENOLOL (ATENOLOL)(ATENOLOL) [Concomitant]
  6. DEXAMETHASONE( DEXAMETHASONE)(DEXAMETHASONE) [Concomitant]
  7. LYRICA (PREGABALIN)(PREGABALIN) [Concomitant]
  8. LIPITOR (ATORVASTATIN CALCIUM)(ATORVASTATIN CALCIUM) [Concomitant]

REACTIONS (9)
  - Asthenia [None]
  - Diabetes mellitus [None]
  - Bronchitis [None]
  - Pulmonary thrombosis [None]
  - Fall [None]
  - Hypotension [None]
  - Pulmonary embolism [None]
  - Oedema [None]
  - Hypoxia [None]
